FAERS Safety Report 9632238 (Version 1)
Quarter: 2013Q4

REPORT INFORMATION
  Report Type: Report from Study
  Country: CA (occurrence: CA)
  Receive Date: 20131018
  Receipt Date: 20131018
  Transmission Date: 20140711
  Serious: Yes (Other)
  Sender: FDA-Public Use
  Company Number: CA-JNJFOC-20131007656

PATIENT
  Age: 57 Year
  Sex: Female
  Weight: 57.3 kg

DRUGS (6)
  1. REMICADE [Suspect]
     Indication: ANKYLOSING SPONDYLITIS
     Route: 042
     Dates: start: 20131015
  2. REMICADE [Suspect]
     Indication: ANKYLOSING SPONDYLITIS
     Route: 042
     Dates: start: 20130920
  3. MICARDIS [Concomitant]
     Route: 065
  4. NAPROXEN [Concomitant]
     Route: 065
  5. ZOPICLONE [Concomitant]
     Route: 065
  6. ATIVAN [Concomitant]
     Indication: PREMEDICATION
     Route: 065

REACTIONS (14)
  - Dyspnoea [Recovered/Resolved]
  - Presyncope [Recovered/Resolved]
  - Infusion related reaction [Recovered/Resolved]
  - Blood pressure increased [Recovered/Resolved]
  - Back pain [Unknown]
  - Vomiting [Recovered/Resolved]
  - Ear infection [Recovered/Resolved]
  - Flushing [Recovered/Resolved]
  - Heart rate increased [Recovered/Resolved]
  - Restlessness [Recovered/Resolved]
  - Nausea [Recovered/Resolved]
  - Malaise [Recovered/Resolved]
  - Fatigue [Unknown]
  - Pain in extremity [Unknown]
